FAERS Safety Report 7493582-7 (Version None)
Quarter: 2011Q2

REPORT INFORMATION
  Report Type: 
  Country: None (occurrence: None)
  Receive Date: 20110520
  Receipt Date: 20110506
  Transmission Date: 20111010
  Serious: Yes (Hospitalization)
  Sender: FDA-Public Use
  Company Number: DE-MYLANLABS-2010S1021710

PATIENT
  Age: 29 Year
  Sex: Female

DRUGS (6)
  1. VALORON /00205402/ [Concomitant]
     Indication: PROCTALGIA
     Route: 048
     Dates: start: 20100801, end: 20101028
  2. METRONIDAZOLE [Concomitant]
     Indication: ABSCESS
     Route: 042
     Dates: start: 20100806, end: 20100816
  3. CIPROFLOXACIN [Concomitant]
     Indication: ABSCESS
     Route: 042
     Dates: start: 20100806, end: 20100816
  4. AZATHIOPRINE [Suspect]
     Indication: CROHN'S DISEASE
     Route: 048
     Dates: start: 20101006, end: 20101028
  5. PREDNISOLONE [Interacting]
     Indication: CROHN'S DISEASE
     Route: 048
     Dates: start: 20100601, end: 20101006
  6. CIPROFLOXACIN [Concomitant]
     Route: 048
     Dates: start: 20100817, end: 20100819

REACTIONS (2)
  - DRUG INTERACTION [None]
  - GASTRITIS [None]
